FAERS Safety Report 8003643-1 (Version None)
Quarter: 2011Q4

REPORT INFORMATION
  Report Type: 
  Country: None (occurrence: None)
  Receive Date: 20111222
  Receipt Date: 20111213
  Transmission Date: 20120403
  Serious: Yes (Other)
  Sender: FDA-Public Use
  Company Number: PHHY2011BR109718

PATIENT
  Sex: Male

DRUGS (4)
  1. VIPOS [Suspect]
  2. LEVOFLOXACIN [Suspect]
  3. FORMOTEROL FUMARATE [Suspect]
  4. ATROVENT [Suspect]

REACTIONS (6)
  - CONSTIPATION [None]
  - NAUSEA [None]
  - VOMITING [None]
  - NASOPHARYNGITIS [None]
  - DYSPNOEA [None]
  - VISUAL IMPAIRMENT [None]
